FAERS Safety Report 17025243 (Version 1)
Quarter: 2019Q4

REPORT INFORMATION
  Report Type: Spontaneous
  Country: US (occurrence: US)
  Receive Date: 20191113
  Receipt Date: 20191113
  Transmission Date: 20200122
  Serious: Yes (Other)
  Sender: FDA-Public Use
  Company Number: US-AMERICAN REGENT INC-2019002440

PATIENT
  Age: 59 Year
  Sex: Male

DRUGS (5)
  1. ETOMIDATE INJECTION (0780-10) [Suspect]
     Active Substance: ETOMIDATE
     Indication: ARTHROSCOPY
  2. PROPOFOL. [Suspect]
     Active Substance: PROPOFOL
     Indication: ARTHROSCOPY
  3. PROPOFOL. [Suspect]
     Active Substance: PROPOFOL
     Indication: GENERAL ANAESTHESIA
     Route: 065
  4. ETOMIDATE INJECTION (0780-10) [Suspect]
     Active Substance: ETOMIDATE
     Indication: GENERAL ANAESTHESIA
     Dosage: UNK
     Route: 065
  5. LEVETIRACETAM. [Concomitant]
     Active Substance: LEVETIRACETAM
     Indication: SEIZURE
     Dosage: UNK
     Route: 065

REACTIONS (2)
  - Autonomic nervous system imbalance [Recovered/Resolved]
  - Dystonia [Recovered/Resolved]
